FAERS Safety Report 9835408 (Version 1)
Quarter: 2014Q1

REPORT INFORMATION
  Report Type: Spontaneous
  Country: JP (occurrence: JP)
  Receive Date: 20140122
  Receipt Date: 20140122
  Transmission Date: 20141002
  Serious: Yes (Other)
  Sender: FDA-Public Use
  Company Number: JP-PFIZER INC-2014019907

PATIENT
  Age: 90 Year
  Sex: Male
  Weight: 60 kg

DRUGS (3)
  1. LYRICA [Suspect]
     Indication: SPINAL COLUMN STENOSIS
     Dosage: 25 MG, 2X/DAY
     Route: 048
     Dates: start: 20140106, end: 20140115
  2. ADALAT [Concomitant]
     Indication: CARDIAC FAILURE
     Dosage: 20 MG, 1X/DAY
     Route: 048
  3. WARFARIN [Concomitant]
     Indication: CARDIAC FAILURE
     Dosage: 2 MG, 1X/DAY
     Route: 048

REACTIONS (2)
  - Pulmonary oedema [Recovered/Resolved]
  - Pleural effusion [Recovered/Resolved]
